FAERS Safety Report 9508668 (Version 1)
Quarter: 2013Q3

REPORT INFORMATION
  Report Type: Spontaneous
  Country: US (occurrence: US)
  Receive Date: 20130909
  Receipt Date: 20130909
  Transmission Date: 20140515
  Serious: Yes (Other)
  Sender: FDA-Public Use
  Company Number: US-GLAXOSMITHKLINE-A1038091A

PATIENT
  Age: 79 Year
  Sex: Female
  Weight: 60.9 kg

DRUGS (11)
  1. TYKERB [Suspect]
     Indication: PRODUCT USED FOR UNKNOWN INDICATION
     Dosage: 250MG UNKNOWN
     Route: 048
     Dates: start: 20090629
  2. AREDIA [Concomitant]
  3. XELODA [Concomitant]
     Indication: PRODUCT USED FOR UNKNOWN INDICATION
     Dosage: 500MG UNKNOWN
  4. FASLODEX [Concomitant]
  5. ATIVAN [Concomitant]
  6. HALAVEN [Concomitant]
  7. AFINITOR [Concomitant]
  8. LASIX [Concomitant]
  9. MARINOL [Concomitant]
  10. ONDANSETRON [Concomitant]
  11. PROCHLORPERAZINE [Concomitant]

REACTIONS (3)
  - Pain in extremity [Unknown]
  - Local swelling [Recovered/Resolved]
  - Cellulitis [Recovered/Resolved]
